FAERS Safety Report 4619933-6 (Version None)
Quarter: 2005Q1

REPORT INFORMATION
  Report Type: 
  Country: None (occurrence: None)
  Receive Date: 20050328
  Receipt Date: 20050311
  Transmission Date: 20050727
  Serious: Yes (Hospitalization)
  Sender: FDA-Public Use
  Company Number: CA-ABBOTT-05P-028-0294368-00

PATIENT
  Sex: Male
  Weight: 66.738 kg

DRUGS (12)
  1. HUMIRA [Suspect]
     Indication: RHEUMATOID ARTHRITIS
     Route: 058
     Dates: start: 20040219, end: 20050224
  2. PANTOPRAZOLE SODIUM [Concomitant]
     Indication: DRUG USE FOR UNKNOWN INDICATION
  3. CELECOXIB [Concomitant]
     Indication: DRUG USE FOR UNKNOWN INDICATION
  4. FOLIC ACID [Concomitant]
     Indication: DRUG USE FOR UNKNOWN INDICATION
  5. METHOTREXATE [Concomitant]
     Indication: DRUG USE FOR UNKNOWN INDICATION
  6. HYDROXYCHLOROQUINE PHOSPHATE [Concomitant]
     Indication: DRUG USE FOR UNKNOWN INDICATION
  7. CANDESARTAN CILEXETIL [Concomitant]
     Indication: DRUG USE FOR UNKNOWN INDICATION
  8. CLOPIDOGREL BISULFATE [Concomitant]
     Indication: DRUG USE FOR UNKNOWN INDICATION
  9. ACETYLSALICYLIC ACID SRT [Concomitant]
     Indication: DRUG USE FOR UNKNOWN INDICATION
  10. ZOCOR [Concomitant]
     Indication: DRUG USE FOR UNKNOWN INDICATION
  11. METOPROLOL TARTRATE [Concomitant]
     Indication: DRUG USE FOR UNKNOWN INDICATION
  12. LORAZEPAM [Concomitant]
     Indication: DRUG USE FOR UNKNOWN INDICATION

REACTIONS (2)
  - FALL [None]
  - HIP FRACTURE [None]
